FAERS Safety Report 26002676 (Version 2)
Quarter: 2025Q4

REPORT INFORMATION
  Report Type: Report from Study
  Country: EU (occurrence: EU)
  Receive Date: 20251106
  Receipt Date: 20251231
  Transmission Date: 20260117
  Serious: Yes (Other)
  Sender: ABBVIE
  Company Number: EU-ABBVIE-6527896

PATIENT
  Age: 83 Year
  Sex: Female

DRUGS (6)
  1. CARBIDOPA\LEVODOPA [Suspect]
     Active Substance: CARBIDOPA\LEVODOPA
     Indication: Parkinson^s disease
     Dosage: MD 6.3ML; CRT 2.9ML/H; ED 1.5ML
     Route: 050
     Dates: start: 20131024
  2. CARBIDOPA\LEVODOPA [Suspect]
     Active Substance: CARBIDOPA\LEVODOPA
  3. VESIKUR [Concomitant]
     Active Substance: SOLIFENACIN SUCCINATE
     Indication: Product used for unknown indication
  4. ESCITALOPRAM [Concomitant]
     Active Substance: ESCITALOPRAM OXALATE
     Indication: Product used for unknown indication
  5. CARBIDOPA\LEVODOPA [Concomitant]
     Active Substance: CARBIDOPA\LEVODOPA
     Indication: Product used for unknown indication
  6. AMANTADINE [Concomitant]
     Active Substance: AMANTADINE
     Indication: Product used for unknown indication

REACTIONS (5)
  - Knee operation [Not Recovered/Not Resolved]
  - Device leakage [Unknown]
  - Psychomotor hyperactivity [Not Recovered/Not Resolved]
  - Arthritis infective [Unknown]
  - Device loosening [Unknown]

NARRATIVE: CASE EVENT DATE: 20250101
